FAERS Safety Report 18198392 (Version 1)
Quarter: 2020Q3

REPORT INFORMATION
  Report Type: Spontaneous
  Country: JP (occurrence: JP)
  Receive Date: 20200826
  Receipt Date: 20200826
  Transmission Date: 20201103
  Serious: Yes (Hospitalization, Other)
  Sender: FDA-Public Use
  Company Number: JP-009507513-2008JPN012284

PATIENT
  Age: 90 Year
  Sex: Female

DRUGS (8)
  1. MEMARY [Suspect]
     Active Substance: MEMANTINE HYDROCHLORIDE
     Dosage: DOSE INCREASED GRADUALLY, EVERYDAY
     Route: 048
     Dates: start: 2018, end: 2018
  2. ROZEREM [Concomitant]
     Active Substance: RAMELTEON
     Dosage: UNK
     Route: 065
     Dates: start: 20180701, end: 20200213
  3. GLACTIV [Suspect]
     Active Substance: SITAGLIPTIN
     Indication: TYPE 2 DIABETES MELLITUS
     Dosage: 50 MG, EVERYDAY
     Route: 048
     Dates: start: 20191111, end: 20200213
  4. AMLODIPINE [Concomitant]
     Active Substance: AMLODIPINE BESYLATE
     Dosage: UNK
     Route: 048
     Dates: start: 20160908
  5. MEMARY [Suspect]
     Active Substance: MEMANTINE HYDROCHLORIDE
     Indication: DEMENTIA ALZHEIMER^S TYPE
     Dosage: 5 MG, EVERYDAY
     Route: 048
     Dates: start: 20180611, end: 2018
  6. MEMARY [Suspect]
     Active Substance: MEMANTINE HYDROCHLORIDE
     Dosage: 20 MG, EVERYDAY
     Route: 048
     Dates: start: 20180727, end: 20200213
  7. YOKU?KAN?SAN?KA?CHIMPI?HANGE [Concomitant]
     Dosage: UNK
     Route: 065
     Dates: start: 20160908, end: 20200213
  8. TENELIA [Concomitant]
     Active Substance: TENELIGLIPTIN
     Dosage: UNK
     Route: 065
     Dates: end: 20200213

REACTIONS (4)
  - Urinary tract infection [Recovering/Resolving]
  - Rhabdomyolysis [Recovered/Resolved]
  - Sepsis [Recovering/Resolving]
  - Fall [Unknown]

NARRATIVE: CASE EVENT DATE: 20200213
